FAERS Safety Report 5671715-2 (Version None)
Quarter: 2008Q1

REPORT INFORMATION
  Report Type: 
  Country: None (occurrence: None)
  Receive Date: 20080314
  Receipt Date: 20080305
  Transmission Date: 20080703
  Serious: Yes (Other)
  Sender: FDA-Public Use
  Company Number: CHPA2008US04326

PATIENT
  Age: 5 Year
  Sex: Male

DRUGS (1)
  1. MAALOX ANTIACID/ANTIGAS MAX STR MULTI SYMPTOM (NCH)(MAGNESIUM HYDROXID [Suspect]
     Dosage: 1 TSP, ORAL
     Route: 048
     Dates: start: 20080305

REACTIONS (6)
  - EYE SWELLING [None]
  - INCORRECT DOSE ADMINISTERED [None]
  - LOCAL SWELLING [None]
  - PENILE SWELLING [None]
  - PRURITUS GENERALISED [None]
  - SWELLING FACE [None]
